FAERS Safety Report 20465493 (Version 1)
Quarter: 2022Q1

REPORT INFORMATION
  Report Type: Report from Study
  Country: NL (occurrence: NL)
  Receive Date: 20220212
  Receipt Date: 20220212
  Transmission Date: 20220424
  Serious: Yes (Other)
  Sender: FDA-Public Use
  Company Number: NL-NOVARTISPH-NVSC2022NL028985

PATIENT
  Age: 72 Year
  Sex: Male

DRUGS (3)
  1. SANDOSTATIN LAR DEPOT [Suspect]
     Active Substance: OCTREOTIDE ACETATE
     Indication: Acromegaly
     Dosage: 1 DOSAGE FORM (EVERY 4 WEEKS) (STRENGTH: 30 MG/ 2 ML)
     Route: 030
  2. SANDOSTATIN LAR DEPOT [Suspect]
     Active Substance: OCTREOTIDE ACETATE
  3. SANDOSTATIN LAR DEPOT [Suspect]
     Active Substance: OCTREOTIDE ACETATE

REACTIONS (3)
  - Respiratory failure [Unknown]
  - Dyspnoea [Not Recovered/Not Resolved]
  - Carbon dioxide increased [Unknown]

NARRATIVE: CASE EVENT DATE: 20211213
